FAERS Safety Report 4991697-6 (Version None)
Quarter: 2006Q2

REPORT INFORMATION
  Report Type: 
  Country: None (occurrence: None)
  Receive Date: 20060504
  Receipt Date: 20060502
  Transmission Date: 20061013
  Serious: Yes (Hospitalization)
  Sender: FDA-Public Use
  Company Number: US-GLAXOSMITHKLINE-A0604082A

PATIENT
  Age: 56 Year
  Sex: Female

DRUGS (3)
  1. LAMICTAL [Suspect]
     Indication: BIPOLAR DISORDER
     Dosage: 2400MG SINGLE DOSE
     Route: 048
  2. RESTORIL [Concomitant]
  3. CLONAZEPAM [Concomitant]

REACTIONS (1)
  - OVERDOSE [None]
